FAERS Safety Report 10355892 (Version 1)
Quarter: 2014Q3

REPORT INFORMATION
  Report Type: Spontaneous
  Country: BR (occurrence: BR)
  Receive Date: 20140801
  Receipt Date: 20140801
  Transmission Date: 20150326
  Serious: Yes (Hospitalization)
  Sender: FDA-Public Use
  Company Number: BR-ACCORD-025032

PATIENT
  Age: 54 Year
  Sex: Female
  Weight: 65.5 kg

DRUGS (7)
  1. DRAMIN B-6 DL [Concomitant]
     Indication: PROPHYLAXIS
     Dosage: SG+DRAMIN B6 DL + METOCLOPRAMIDE?DAILY DOSAGE:1 BAG
     Route: 042
     Dates: start: 20140707, end: 20140707
  2. KYTRIL [Concomitant]
     Active Substance: GRANISETRON HYDROCHLORIDE
     Indication: PROPHYLAXIS
     Route: 042
     Dates: start: 20140707, end: 20140707
  3. DEXAMETHASONE. [Concomitant]
     Active Substance: DEXAMETHASONE
     Indication: PROPHYLAXIS
     Dosage: SF 250 ML + RANITIDINE + DEXAMETHASONE?DAILY DOSE:1 BAG
     Route: 042
     Dates: start: 20140707, end: 20140707
  4. METOCLOPRAMIDE. [Concomitant]
     Active Substance: METOCLOPRAMIDE
     Indication: PROPHYLAXIS
     Dosage: SG+DRAMIN B6 DL+ METOCLOPRAMIDE?DAILY DOSAGE: 1 BAG
     Route: 042
     Dates: start: 20140707, end: 20140707
  5. RANITIDINE [Concomitant]
     Active Substance: RANITIDINE\RANITIDINE HYDROCHLORIDE
     Indication: PROPHYLAXIS
     Dosage: SF 250 ML + RANITIDINE + DEXAMETHASONE?DAILY DOSE:1 BAG
     Route: 042
     Dates: start: 20140707, end: 20140707
  6. CARBOPLATIN. [Concomitant]
     Active Substance: CARBOPLATIN
     Indication: OVARIAN CANCER
     Dates: start: 20140707
  7. PACLITAXEL/PACLITAXEL LIPOSOME [Suspect]
     Active Substance: PACLITAXEL
     Indication: OVARIAN CANCER
     Route: 042
     Dates: start: 20140707, end: 20140707

REACTIONS (6)
  - Abdominal pain [Recovering/Resolving]
  - Hypotension [Recovering/Resolving]
  - Hyperaemia [Recovering/Resolving]
  - Dyspnoea [Recovering/Resolving]
  - Oxygen saturation decreased [Recovering/Resolving]
  - Hyperhidrosis [Recovering/Resolving]

NARRATIVE: CASE EVENT DATE: 20140707
